FAERS Safety Report 6546031-7 (Version None)
Quarter: 2010Q1

REPORT INFORMATION
  Report Type: 
  Country: None (occurrence: None)
  Receive Date: 20100121
  Receipt Date: 20100121
  Transmission Date: 20100710
  Serious: Yes (Life-Threatening, Hospitalization, Disabling)
  Sender: FDA-Public Use
  Company Number: None

PATIENT
  Age: 50 Year
  Sex: Male
  Weight: 83.4619 kg

DRUGS (2)
  1. RIBASPHERE [Suspect]
     Indication: HEPATITIS C
     Dosage: 6 TABLETS DAILY 2 X DAILY PO
     Route: 048
     Dates: start: 20090329, end: 20100113
  2. PEGASYS [Suspect]
     Dosage: 1 PREFILLED 0.5ML SYRINGE WEEK 1 SHOT WEEKLY SQ
     Route: 058
     Dates: start: 20090329, end: 20100113

REACTIONS (8)
  - CONFUSIONAL STATE [None]
  - FEELING ABNORMAL [None]
  - HALLUCINATION [None]
  - MEMORY IMPAIRMENT [None]
  - PAIN [None]
  - SLEEP DISORDER [None]
  - TREATMENT NONCOMPLIANCE [None]
  - WHITE BLOOD CELL COUNT DECREASED [None]
